FAERS Safety Report 4375944-X (Version None)
Quarter: 2004Q2

REPORT INFORMATION
  Report Type: 
  Country: None (occurrence: None)
  Receive Date: 20040609
  Receipt Date: 20040609
  Transmission Date: 20050107
  Serious: No
  Sender: FDA-Public Use
  Company Number: None

PATIENT
  Sex: Male

DRUGS (1)
  1. ATARAX [Suspect]
     Dosage: 25 MG
     Dates: start: 20040422

REACTIONS (7)
  - BALANCE DISORDER [None]
  - CONDITION AGGRAVATED [None]
  - DRY MOUTH [None]
  - FATIGUE [None]
  - LETHARGY [None]
  - SEDATION [None]
  - SOMNOLENCE [None]
